FAERS Safety Report 7792109-X (Version None)
Quarter: 2011Q4

REPORT INFORMATION
  Report Type: 
  Country: None (occurrence: None)
  Receive Date: 20111003
  Receipt Date: 20110928
  Transmission Date: 20120403
  Serious: Yes (Other)
  Sender: FDA-Public Use
  Company Number: GB-BAXTER-2011BH030621

PATIENT
  Age: 16 Year
  Sex: Male

DRUGS (11)
  1. TOPIRAMATE [Concomitant]
     Indication: PRODUCT USED FOR UNKNOWN INDICATION
     Route: 065
  2. LOPERAMIDE HCL [Concomitant]
     Indication: PRODUCT USED FOR UNKNOWN INDICATION
     Route: 065
  3. POTASSIUM BICARBONATE [Concomitant]
     Indication: PRODUCT USED FOR UNKNOWN INDICATION
     Route: 065
  4. FENTANYL [Concomitant]
     Indication: PRODUCT USED FOR UNKNOWN INDICATION
     Route: 061
  5. IFOSFAMIDE [Suspect]
     Indication: EWING'S SARCOMA
     Route: 042
  6. DACTINOMYCIN [Suspect]
     Indication: EWING'S SARCOMA
     Route: 042
  7. VINCRISTINE [Suspect]
     Indication: EWING'S SARCOMA
     Route: 042
  8. ETOPOSIDE [Suspect]
     Indication: EWING'S SARCOMA
     Route: 042
  9. PHOSPHATE-SANDOZ [Concomitant]
     Indication: PRODUCT USED FOR UNKNOWN INDICATION
     Route: 065
  10. DOXORUBICIN HCL [Suspect]
     Indication: EWING'S SARCOMA
     Route: 042
  11. SODIUM BICARBONATE [Concomitant]
     Indication: PRODUCT USED FOR UNKNOWN INDICATION
     Route: 065

REACTIONS (2)
  - RENAL TUBULAR ACIDOSIS [None]
  - TUBULOINTERSTITIAL NEPHRITIS [None]
